FAERS Safety Report 20526486 (Version 1)
Quarter: 2022Q1

REPORT INFORMATION
  Report Type: Spontaneous
  Country: US (occurrence: None)
  Receive Date: 20220228
  Receipt Date: 20220228
  Transmission Date: 20220423
  Serious: No
  Sender: FDA-Public Use
  Company Number: None

PATIENT
  Age: 87 Year
  Sex: Female

DRUGS (1)
  1. IMATINIB MESYLATE [Suspect]
     Active Substance: IMATINIB MESYLATE
     Indication: Myeloid leukaemia
     Dosage: FREQUENCY : DAILY;?

REACTIONS (2)
  - Dehydration [None]
  - Volume blood decreased [None]

NARRATIVE: CASE EVENT DATE: 20220224
